FAERS Safety Report 5476814-6 (Version None)
Quarter: 2007Q4

REPORT INFORMATION
  Report Type: 
  Country: None (occurrence: None)
  Receive Date: 20071003
  Receipt Date: 20071003
  Transmission Date: 20080405
  Serious: No
  Sender: FDA-Public Use
  Company Number: None

PATIENT
  Age: 80 Year
  Sex: Female
  Weight: 70 kg

DRUGS (2)
  1. PHENERGAN [Suspect]
     Indication: ANXIETY
     Dosage: 12.5MG Q4? PRN IV
     Route: 042
     Dates: start: 20070910, end: 20070910
  2. PHENERGAN [Suspect]
     Dosage: 25MG Q4? PRN PO
     Route: 048

REACTIONS (3)
  - CONDITION AGGRAVATED [None]
  - MUSCLE SPASMS [None]
  - RESTLESSNESS [None]
